FAERS Safety Report 21328419 (Version 3)
Quarter: 2022Q4

REPORT INFORMATION
  Report Type: Report from Study
  Country: LT (occurrence: LT)
  Receive Date: 20220913
  Receipt Date: 20221115
  Transmission Date: 20230113
  Serious: Yes (Hospitalization)
  Sender: FDA-Public Use
  Company Number: LT-ABBVIE-22P-234-4515574-00

PATIENT
  Age: 50 Year
  Sex: Female
  Weight: 60 kg

DRUGS (7)
  1. PLACEBO [Suspect]
     Active Substance: UNSPECIFIED INGREDIENT
     Indication: Psoriatic arthropathy
     Dosage: WEEK 0,4,16
     Route: 058
     Dates: start: 20200116, end: 20200507
  2. RISANKIZUMAB [Suspect]
     Active Substance: RISANKIZUMAB
     Indication: Psoriatic arthropathy
     Dosage: TIME INTERVAL: 1 TOTAL: WEEK 24
     Route: 058
     Dates: start: 20200702, end: 20200702
  3. RISANKIZUMAB [Suspect]
     Active Substance: RISANKIZUMAB
     Indication: Psoriatic arthropathy
     Route: 058
     Dates: start: 20200730
  4. MEDROL [Concomitant]
     Active Substance: METHYLPREDNISOLONE
     Indication: Psoriatic arthropathy
     Route: 048
     Dates: start: 20190227
  5. MELOXICAM [Concomitant]
     Active Substance: MELOXICAM
     Indication: Psoriatic arthropathy
     Route: 048
     Dates: start: 20190227
  6. METHOTREXATE [Concomitant]
     Active Substance: METHOTREXATE
     Indication: Psoriatic arthropathy
     Route: 058
     Dates: start: 20190227
  7. ACIDI FOLICI [Concomitant]
     Indication: Psoriatic arthropathy
     Route: 048
     Dates: start: 20190227

REACTIONS (2)
  - Renal abscess [Recovered/Resolved]
  - Perinephric abscess [Recovered/Resolved]

NARRATIVE: CASE EVENT DATE: 20220801
